FAERS Safety Report 23351297 (Version 1)
Quarter: 2023Q4

REPORT INFORMATION
  Report Type: Spontaneous
  Country: US (occurrence: None)
  Receive Date: 20231229
  Receipt Date: 20231229
  Transmission Date: 20240109
  Serious: Yes (Hospitalization)
  Sender: FDA-Public Use
  Company Number: None

PATIENT
  Age: 64 Year
  Sex: Male
  Weight: 103.5 kg

DRUGS (1)
  1. CYTARABINE\DAUNORUBICIN [Suspect]
     Active Substance: CYTARABINE\DAUNORUBICIN
     Dates: end: 20231208

REACTIONS (8)
  - Upper gastrointestinal haemorrhage [None]
  - Febrile neutropenia [None]
  - Septic shock [None]
  - Hyperthermia [None]
  - Respiratory alkalosis [None]
  - Metabolic acidosis [None]
  - Blood loss anaemia [None]
  - Hypotension [None]

NARRATIVE: CASE EVENT DATE: 20231222
